FAERS Safety Report 11496157 (Version 1)
Quarter: 2015Q3

REPORT INFORMATION
  Report Type: Spontaneous
  Country: IT (occurrence: IT)
  Receive Date: 20150911
  Receipt Date: 20150911
  Transmission Date: 20151125
  Serious: Yes (Hospitalization)
  Sender: FDA-Public Use
  Company Number: IT-IPCA LABORATORIES LIMITED-IPC201509-000586

PATIENT
  Age: 71 Year
  Sex: Male

DRUGS (2)
  1. AMIODARONE [Concomitant]
     Active Substance: AMIODARONE
     Indication: ARRHYTHMIA PROPHYLAXIS
  2. WARFARIN [Suspect]
     Active Substance: WARFARIN
     Indication: THROMBOSIS PROPHYLAXIS

REACTIONS (7)
  - Syncope [Unknown]
  - International normalised ratio increased [Recovered/Resolved]
  - Coagulation time prolonged [Recovered/Resolved]
  - Bradyarrhythmia [Unknown]
  - Craniocerebral injury [Unknown]
  - Toxicity to various agents [Unknown]
  - Dizziness [Unknown]
